APPROVED DRUG PRODUCT: FLUTICASONE PROPIONATE
Active Ingredient: FLUTICASONE PROPIONATE
Strength: 0.05MG/SPRAY
Dosage Form/Route: SPRAY, METERED;NASAL
Application: A219060 | Product #001
Applicant: RUBICON RESEARCH PRIVATE LTD
Approved: Aug 15, 2025 | RLD: No | RS: No | Type: OTC